FAERS Safety Report 4933185-9 (Version None)
Quarter: 2006Q1

REPORT INFORMATION
  Report Type: 
  Country: None (occurrence: None)
  Receive Date: 20060306
  Receipt Date: 20050607
  Transmission Date: 20060701
  Serious: Yes (Hospitalization)
  Sender: FDA-Public Use
  Company Number: US-MERCK-0506USA01059

PATIENT
  Age: 56 Year
  Sex: Female
  Weight: 64 kg

DRUGS (10)
  1. VIOXX [Suspect]
     Indication: ARTHRITIS
     Route: 048
     Dates: start: 19990701, end: 20011001
  2. TYLENOL W/ CODEINE NO. 3 [Concomitant]
     Route: 065
  3. [THERAPY UNSPECIFIED] [Concomitant]
     Route: 065
  4. ACCUPRIL [Concomitant]
     Route: 065
  5. PREVACID [Concomitant]
     Route: 065
  6. VICODIN [Concomitant]
     Route: 065
  7. ESTRACE [Concomitant]
     Route: 065
  8. LIPITOR [Concomitant]
     Route: 065
  9. BENADRYL [Concomitant]
     Route: 065
  10. CELEBREX [Concomitant]
     Route: 065

REACTIONS (21)
  - ACUTE MYOCARDIAL INFARCTION [None]
  - ANXIETY [None]
  - CHEST PAIN [None]
  - CHRONIC FATIGUE SYNDROME [None]
  - CONFUSIONAL STATE [None]
  - CYST [None]
  - CYSTITIS [None]
  - DIARRHOEA [None]
  - DIZZINESS [None]
  - DRUG SCREEN POSITIVE [None]
  - DYSPNOEA [None]
  - GASTROINTESTINAL DISORDER [None]
  - HYPERTENSION [None]
  - HYPOTHYROIDISM [None]
  - INCORRECT DOSE ADMINISTERED [None]
  - INJURY [None]
  - MENTAL STATUS CHANGES [None]
  - NAUSEA [None]
  - PYELONEPHRITIS [None]
  - URINARY TRACT INFECTION [None]
  - VOMITING [None]
